FAERS Safety Report 14201733 (Version 1)
Quarter: 2017Q4

REPORT INFORMATION
  Report Type: Spontaneous
  Country: US (occurrence: US)
  Receive Date: 20171117
  Receipt Date: 20171117
  Transmission Date: 20180321
  Serious: Yes (Other)
  Sender: FDA-Public Use
  Company Number: US-PROCTER+GAMBLE-GS17125498

PATIENT
  Sex: Female

DRUGS (1)
  1. BABYRUB [Suspect]
     Active Substance: EUCALYPTUS OIL
     Indication: NASAL CONGESTION
     Route: 061

REACTIONS (1)
  - Seizure [Recovered/Resolved]
